FAERS Safety Report 13294280 (Version 1)
Quarter: 2017Q1

REPORT INFORMATION
  Report Type: Spontaneous
  Country: CH (occurrence: CH)
  Receive Date: 20170303
  Receipt Date: 20170303
  Transmission Date: 20170428
  Serious: Yes (Hospitalization)
  Sender: FDA-Public Use
  Company Number: CH-TEVA-743695ISR

PATIENT
  Age: 78 Year
  Sex: Female
  Weight: 67.4 kg

DRUGS (13)
  1. CONCOR 10 [Concomitant]
     Dosage: 5 MILLIGRAM DAILY;
     Route: 048
     Dates: end: 201612
  2. COVERSUM N [Concomitant]
     Active Substance: PERINDOPRIL
     Dosage: 10 MILLIGRAM DAILY;
     Route: 048
  3. ELTROXIN LF [Concomitant]
     Dosage: 1 TABLET TWICE WEEKLY
     Route: 048
  4. ZALDIAR [Concomitant]
     Active Substance: ACETAMINOPHEN\TRAMADOL HYDROCHLORIDE
     Dosage: 4 DOSAGE FORMS DAILY; DOSAGE 37.5 / 325 MG
     Route: 048
  5. ASPIRIN CARDIO 100 [Concomitant]
     Active Substance: ASPIRIN
     Dosage: 100 MILLIGRAM DAILY;
     Route: 048
  6. METFORMIN- MEPHA [Interacting]
     Active Substance: METFORMIN HYDROCHLORIDE
     Dosage: 1000 MILLIGRAM DAILY;
     Route: 048
  7. PANTOZOL [Concomitant]
     Active Substance: PANTOPRAZOLE SODIUM
     Dosage: 40 MILLIGRAM DAILY;
     Route: 048
  8. ROHYPNOL [Concomitant]
     Active Substance: FLUNITRAZEPAM
     Dosage: 2 MILLIGRAM DAILY;
     Route: 048
  9. ECOFENAC [Concomitant]
     Active Substance: DICLOFENAC SODIUM
     Dosage: 150 MILLIGRAM DAILY;
     Route: 048
     Dates: end: 201612
  10. LANTUS [Interacting]
     Active Substance: INSULIN GLARGINE
     Dosage: DOSAGE: 26-30 U / DAY TO DAY DEPENDING ON BLOOD SUGAR.
     Route: 058
     Dates: end: 201612
  11. PRAVALOTIN MEPHA [Concomitant]
     Active Substance: PRAVASTATIN SODIUM
     Dosage: 40 MILLIGRAM DAILY;
     Route: 048
  12. METFORMIN- MEPHA [Suspect]
     Active Substance: METFORMIN HYDROCHLORIDE
     Dosage: 2000 MILLIGRAM DAILY;
     Route: 048
  13. GABAPENTIN PFIZER [Concomitant]
     Active Substance: GABAPENTIN
     Dosage: 900 MILLIGRAM DAILY;
     Route: 048

REACTIONS (3)
  - Hypoglycaemia [Recovered/Resolved]
  - Confusional state [Recovered/Resolved]
  - Drug interaction [Unknown]

NARRATIVE: CASE EVENT DATE: 20161223
